FAERS Safety Report 18461693 (Version 1)
Quarter: 2020Q4

REPORT INFORMATION
  Report Type: Spontaneous
  Country: US (occurrence: US)
  Receive Date: 20201103
  Receipt Date: 20201103
  Transmission Date: 20210114
  Serious: No
  Sender: FDA-Public Use
  Company Number: None

PATIENT
  Age: 87 Year
  Sex: Male
  Weight: 77.13 kg

DRUGS (10)
  1. CBD OIL [Concomitant]
     Active Substance: CANNABIDIOL\HERBALS
  2. ASPIRIN. [Concomitant]
     Active Substance: ASPIRIN
  3. ATENOLOL. [Concomitant]
     Active Substance: ATENOLOL
  4. BUPROPION. [Concomitant]
     Active Substance: BUPROPION
  5. CAPECITABINE. [Suspect]
     Active Substance: CAPECITABINE
     Indication: COLON CANCER
     Dosage: ?          OTHER FREQUENCY:4T AM, 3T PM;?
     Route: 048
     Dates: start: 20200713, end: 20201103
  6. FINASTERIDE. [Concomitant]
     Active Substance: FINASTERIDE
  7. VIT D [Concomitant]
     Active Substance: VITAMIN D NOS
  8. CLONAZEPAM. [Concomitant]
     Active Substance: CLONAZEPAM
  9. IRON [Concomitant]
     Active Substance: IRON
  10. FLOMAX [Concomitant]
     Active Substance: TAMSULOSIN HYDROCHLORIDE

REACTIONS (1)
  - Unevaluable event [None]

NARRATIVE: CASE EVENT DATE: 20201103
